FAERS Safety Report 6656204-0 (Version None)
Quarter: 2010Q1

REPORT INFORMATION
  Report Type: 
  Country: None (occurrence: None)
  Receive Date: 20100329
  Receipt Date: 20100318
  Transmission Date: 20100710
  Serious: Yes (Hospitalization)
  Sender: FDA-Public Use
  Company Number: CN-JNJFOC-20100305728

PATIENT
  Age: 47 Year
  Sex: Female

DRUGS (5)
  1. SPORANOX [Suspect]
     Indication: ANTIFUNGAL PROPHYLAXIS
     Route: 042
  2. ZYVOX [Suspect]
     Indication: ANTI-INFECTIVE THERAPY
     Route: 065
  3. MEPEM [Suspect]
     Indication: ANTI-INFECTIVE THERAPY
     Route: 065
  4. TEICOPLANIN [Suspect]
     Indication: ANTI-INFECTIVE THERAPY
     Route: 065
  5. CANCIDAS [Suspect]
     Indication: ANTI-INFECTIVE THERAPY
     Route: 065

REACTIONS (4)
  - CONSTIPATION [None]
  - DRUG INEFFECTIVE [None]
  - OEDEMA [None]
  - OLIGURIA [None]
